FAERS Safety Report 20888812 (Version 1)
Quarter: 2022Q2

REPORT INFORMATION
  Report Type: Spontaneous
  Country: CH (occurrence: CH)
  Receive Date: 20220529
  Receipt Date: 20220529
  Transmission Date: 20220720
  Serious: Yes (Other)
  Sender: FDA-Public Use
  Company Number: CH-BEH-2022145887

PATIENT

DRUGS (2)
  1. PRIVIGEN [Suspect]
     Active Substance: HUMAN IMMUNOGLOBULIN G
     Indication: Myasthenia gravis
     Dosage: 0.4 G/KILOGRAM ON 5 FOLLOWING DAYS, QMT
     Route: 042
     Dates: start: 20200702
  2. PRIVIGEN [Suspect]
     Active Substance: HUMAN IMMUNOGLOBULIN G
     Dosage: 2 MILLIGRAM/KILOGRAM ON 5 FOLLOWING DAYS, QMT
     Route: 042

REACTIONS (2)
  - Myasthenia gravis crisis [Unknown]
  - Drug ineffective [Unknown]

NARRATIVE: CASE EVENT DATE: 20210301
